FAERS Safety Report 24389463 (Version 1)
Quarter: 2024Q4

REPORT INFORMATION
  Report Type: Spontaneous
  Country: US (occurrence: US)
  Receive Date: 20241003
  Receipt Date: 20241003
  Transmission Date: 20250114
  Serious: No
  Sender: STRIDES
  Company Number: US-STRIDES ARCOLAB LIMITED-2024SP011151

PATIENT
  Age: 35 Year
  Sex: Female

DRUGS (1)
  1. PREDNISOLONE [Suspect]
     Active Substance: PREDNISOLONE
     Indication: Bell^s palsy
     Dosage: 60 MILLIGRAM, QD
     Route: 048

REACTIONS (1)
  - Maternal exposure during pregnancy [Unknown]
